FAERS Safety Report 14069053 (Version 2)
Quarter: 2017Q4

REPORT INFORMATION
  Report Type: Report from Study
  Country: US (occurrence: BR)
  Receive Date: 20171010
  Receipt Date: 20171023
  Transmission Date: 20180321
  Serious: Yes (Other)
  Sender: FDA-Public Use
  Company Number: US-SUNOVION-2017SUN004381

PATIENT
  Sex: Female
  Weight: 70 kg

DRUGS (3)
  1. CONCOR [Concomitant]
     Active Substance: BISOPROLOL FUMARATE
  2. PNEUMO 23 [Concomitant]
     Active Substance: PNEUMOCOCCAL VACCINE, POLYVALENT 23
     Indication: PROPHYLAXIS
     Dosage: UNK
     Route: 065
  3. INDACATEROL AND GLYCOPYRROLATE [Suspect]
     Active Substance: GLYCOPYRROLATE\INDACATEROL MALEATE
     Indication: EMPHYSEMA
     Dosage: 1 DF, QD (GLYCOPYRRONIUM BROMIDE 0.05 MG, INDACATEROL 0.11 MG)
     Route: 055

REACTIONS (8)
  - Cardiac failure [Unknown]
  - Wrong technique in product usage process [Unknown]
  - Dyspnoea [Recovered/Resolved]
  - Fear of disease [Unknown]
  - Bronchitis [Unknown]
  - Nervousness [Not Recovered/Not Resolved]
  - Lung cyst [Unknown]
  - Cardiac disorder [Recovering/Resolving]
